APPROVED DRUG PRODUCT: CARBIDOPA, LEVODOPA AND ENTACAPONE
Active Ingredient: CARBIDOPA; ENTACAPONE; LEVODOPA
Strength: 37.5MG;200MG;150MG
Dosage Form/Route: TABLET;ORAL
Application: A079085 | Product #002
Applicant: SUN PHARMACEUTICAL INDUSTRIES LTD
Approved: May 10, 2012 | RLD: No | RS: No | Type: DISCN